FAERS Safety Report 8456593-0 (Version None)
Quarter: 2012Q2

REPORT INFORMATION
  Report Type: 
  Country: None (occurrence: None)
  Receive Date: 20120621
  Receipt Date: 20120618
  Transmission Date: 20120825
  Serious: Yes (Hospitalization, Other)
  Sender: FDA-Public Use
  Company Number: CA-CELGENEUS-028-21880-12043125

PATIENT
  Sex: Female

DRUGS (13)
  1. LYRICA [Concomitant]
     Route: 065
  2. OXYGEN [Concomitant]
     Dosage: 2 LITERS
     Route: 065
     Dates: start: 20120331
  3. PIPERACILLIN AND TAZOBACTAM [Concomitant]
     Indication: FEBRILE NEUTROPENIA
     Route: 065
     Dates: start: 20120331
  4. OXYCONTIN [Concomitant]
     Route: 065
  5. REVLIMID [Suspect]
     Dosage: 15 MILLIGRAM
     Route: 048
     Dates: start: 20120501
  6. REVLIMID [Suspect]
     Indication: MULTIPLE MYELOMA
     Dosage: 25 MILLIGRAM
     Route: 048
     Dates: start: 20120314, end: 20120427
  7. METFORMIN HCL [Concomitant]
     Route: 065
  8. DEXAMETHASONE SODIUM POSPHATE [Concomitant]
     Indication: MULTIPLE MYELOMA
     Route: 065
  9. METOPROLOL [Concomitant]
     Dosage: 50 MILLIGRAM
     Route: 065
     Dates: start: 20120301
  10. CIPROFLOXACIN HYDROCHLORIDE [Concomitant]
     Dosage: 500 MILLIGRAM
     Route: 048
     Dates: start: 20120328
  11. NORTRIPTYLINE HYDROCHLORIDE [Concomitant]
     Route: 065
  12. PREDNISONE TAB [Concomitant]
     Route: 065
  13. METOPROLOL [Concomitant]
     Dosage: 25 MILLIGRAM
     Route: 065
     Dates: start: 20120101

REACTIONS (11)
  - ESCHERICHIA TEST POSITIVE [None]
  - CONSTIPATION [None]
  - BLOOD SODIUM DECREASED [None]
  - ABDOMINAL DISTENSION [None]
  - HEADACHE [None]
  - BRADYCARDIA [None]
  - ABDOMINAL PAIN UPPER [None]
  - INFECTION [None]
  - FEBRILE NEUTROPENIA [None]
  - THROMBOCYTOPENIA [None]
  - PERICARDITIS [None]
